FAERS Safety Report 10500816 (Version 4)
Quarter: 2014Q4

REPORT INFORMATION
  Report Type: Spontaneous
  Country: US (occurrence: US)
  Receive Date: 20141007
  Receipt Date: 20141124
  Transmission Date: 20150528
  Serious: Yes (Hospitalization, Other)
  Sender: FDA-Public Use
  Company Number: US-UNITED THERAPEUTICS-UNT-2014-008501

PATIENT
  Age: 53 Year
  Sex: Female
  Weight: 72.56 kg

DRUGS (3)
  1. WARFARIN [Concomitant]
     Active Substance: WARFARIN
     Indication: PRODUCT USED FOR UNKNOWN INDICATION
  2. REMODULIN [Suspect]
     Active Substance: TREPROSTINIL
     Indication: PULMONARY ARTERIAL HYPERTENSION
     Dosage: 0.059 ?G/KG, CONTINUING
     Route: 041
     Dates: start: 20110520
  3. REVATIO [Suspect]
     Active Substance: SILDENAFIL CITRATE
     Indication: PRODUCT USED FOR UNKNOWN INDICATION

REACTIONS (7)
  - Drug dose omission [Unknown]
  - Bacteraemia [Unknown]
  - Blood viscosity increased [Unknown]
  - Blood pressure decreased [Unknown]
  - Medical device complication [Unknown]
  - Headache [Unknown]
  - Pyrexia [Unknown]

NARRATIVE: CASE EVENT DATE: 2014
